FAERS Safety Report 7648523-6 (Version None)
Quarter: 2011Q3

REPORT INFORMATION
  Report Type: 
  Country: None (occurrence: None)
  Receive Date: 20110801
  Receipt Date: 20110729
  Transmission Date: 20111222
  Serious: Yes (Hospitalization, Other)
  Sender: FDA-Public Use
  Company Number: GB-PFIZER INC-2011037226

PATIENT
  Sex: Male

DRUGS (6)
  1. MIRTAZAPINE [Suspect]
     Route: 063
  2. OLANZAPINE [Suspect]
     Route: 064
  3. OLANZAPINE [Suspect]
     Route: 063
  4. TRAZODONE HCL [Suspect]
     Route: 064
  5. MIRTAZAPINE [Suspect]
     Dosage: UNK
     Route: 064
  6. TRAZODONE HCL [Suspect]
     Route: 063

REACTIONS (9)
  - RESTLESSNESS [None]
  - VOMITING [None]
  - EXPOSURE DURING BREAST FEEDING [None]
  - DRUG WITHDRAWAL SYNDROME NEONATAL [None]
  - COUGH [None]
  - MATERNAL EXPOSURE DURING PREGNANCY [None]
  - FEEDING DISORDER NEONATAL [None]
  - GASTROOESOPHAGEAL REFLUX DISEASE [None]
  - SEPSIS NEONATAL [None]
